FAERS Safety Report 6386838-2 (Version None)
Quarter: 2009Q4

REPORT INFORMATION
  Report Type: 
  Country: None (occurrence: None)
  Receive Date: 20091001
  Receipt Date: 20091001
  Transmission Date: 20100525
  Serious: No
  Sender: FDA-Public Use
  Company Number: None

PATIENT
  Age: 76 Year
  Sex: Male
  Weight: 65 kg

DRUGS (9)
  1. VISIPAQUE 270 [Suspect]
     Indication: DIAGNOSTIC PROCEDURE
     Dosage: 40 ML Q12 IV
     Route: 042
     Dates: start: 20090806
  2. VISIPAQUE 270 [Suspect]
     Indication: DIAGNOSTIC PROCEDURE
     Dosage: 40 ML Q12 IV
     Route: 042
     Dates: start: 20090807
  3. PREDNISONE [Concomitant]
  4. BENADRYL [Concomitant]
  5. SOLU-CORTEF [Concomitant]
  6. ZOFRAN [Concomitant]
  7. MORPHINE [Concomitant]
  8. NITROGLYCERIN [Concomitant]
  9. HEPARIN [Concomitant]

REACTIONS (1)
  - RENAL FAILURE ACUTE [None]
